APPROVED DRUG PRODUCT: ASTAGRAF XL
Active Ingredient: TACROLIMUS
Strength: EQ 1MG BASE
Dosage Form/Route: CAPSULE, EXTENDED RELEASE;ORAL
Application: N204096 | Product #002 | TE Code: AB
Applicant: ASTELLAS PHARMA US INC
Approved: Jul 19, 2013 | RLD: Yes | RS: No | Type: RX